FAERS Safety Report 10882215 (Version 1)
Quarter: 2015Q1

REPORT INFORMATION
  Report Type: Spontaneous
  Country: US (occurrence: US)
  Receive Date: 20150303
  Receipt Date: 20150303
  Transmission Date: 20150721
  Serious: No
  Sender: FDA-Public Use
  Company Number: US-PURDUE-USA-2015-0120598

PATIENT
  Age: 46 Year
  Sex: Male

DRUGS (1)
  1. OXYCODONE/ ACETAMINOPHEN TABLETS [Suspect]
     Active Substance: ACETAMINOPHEN\OXYCODONE HYDROCHLORIDE
     Indication: BACK PAIN
     Dosage: 10/325 UNK, UNK
     Route: 048
     Dates: start: 20150124

REACTIONS (6)
  - Product taste abnormal [Unknown]
  - Back pain [Unknown]
  - Drug ineffective [Not Recovered/Not Resolved]
  - Suspected counterfeit product [Unknown]
  - Wrong technique in drug usage process [Unknown]
  - Abdominal pain lower [Unknown]

NARRATIVE: CASE EVENT DATE: 20150124
